FAERS Safety Report 15273716 (Version 18)
Quarter: 2020Q3

REPORT INFORMATION
  Report Type: Spontaneous
  Country: DE (occurrence: DE)
  Receive Date: 20180813
  Receipt Date: 20200920
  Transmission Date: 20201102
  Serious: Yes (Life-Threatening, Hospitalization, Other)
  Sender: FDA-Public Use
  Company Number: PHHY2018DE069011

PATIENT
  Age: 79 Year
  Sex: Female
  Weight: 65 kg

DRUGS (26)
  1. TAFINLAR [Suspect]
     Active Substance: DABRAFENIB MESYLATE
     Indication: MALIGNANT MELANOMA
     Dosage: 300 MG, QD
     Route: 048
     Dates: start: 20180616, end: 20190311
  2. ENOXAPARIN [Suspect]
     Active Substance: ENOXAPARIN
     Dosage: 10000 IU, QD
     Route: 058
  3. ENOXAPARIN [Suspect]
     Active Substance: ENOXAPARIN
     Indication: PULMONARY EMBOLISM
     Dosage: 10000 IU, QD
     Route: 058
     Dates: start: 20180403, end: 20180417
  4. ENOXAPARIN [Suspect]
     Active Substance: ENOXAPARIN
     Dosage: 5000 IU
     Route: 058
     Dates: start: 20180403, end: 20180417
  5. ENOXAPARIN [Suspect]
     Active Substance: ENOXAPARIN
     Dosage: 50000 IU
     Route: 058
     Dates: start: 20180403, end: 20180417
  6. VEMURAFENIB. [Suspect]
     Active Substance: VEMURAFENIB
     Dosage: 1920 MG, QD
     Route: 048
     Dates: start: 20180312
  7. VEMURAFENIB. [Suspect]
     Active Substance: VEMURAFENIB
     Dosage: 960 MG
     Route: 048
     Dates: start: 20180403, end: 20180615
  8. CANDESARTAN. [Concomitant]
     Active Substance: CANDESARTAN
     Indication: HYPERTENSION
     Dosage: 16 MG, QD
     Route: 048
  9. MEKINIST [Suspect]
     Active Substance: TRAMETINIB DIMETHYL SULFOXIDE
     Indication: MALIGNANT MELANOMA
     Dosage: 2 MG, QD
     Route: 048
     Dates: start: 20180616, end: 20190311
  10. ENOXAPARIN [Suspect]
     Active Substance: ENOXAPARIN
     Dosage: 1000 IU
     Route: 058
  11. COBIMETINIB. [Suspect]
     Active Substance: COBIMETINIB
     Dosage: 60 MG, QD
     Route: 048
     Dates: start: 20180403, end: 20180615
  12. VEMURAFENIB. [Suspect]
     Active Substance: VEMURAFENIB
     Dosage: 960 MG
     Route: 048
     Dates: start: 20180312, end: 20180320
  13. METRONIDAZOL [Concomitant]
     Active Substance: METRONIDAZOLE
     Indication: PRODUCT USED FOR UNKNOWN INDICATION
     Dosage: 400 MG, QD
     Route: 048
     Dates: start: 20180412, end: 20180418
  14. VEMURAFENIB. [Suspect]
     Active Substance: VEMURAFENIB
     Dosage: 1920 MG, QD
     Route: 048
     Dates: start: 20180403, end: 20180615
  15. COBIMETINIB. [Suspect]
     Active Substance: COBIMETINIB
     Dosage: 60 MG, QD
     Route: 048
     Dates: start: 20180312, end: 20180320
  16. VEMURAFENIB. [Suspect]
     Active Substance: VEMURAFENIB
     Dosage: 960 MG
     Route: 048
     Dates: start: 20180403, end: 20180615
  17. VEMURAFENIB. [Suspect]
     Active Substance: VEMURAFENIB
     Dosage: 960 MG
     Route: 048
     Dates: start: 20180403
  18. TAFINLAR [Suspect]
     Active Substance: DABRAFENIB MESYLATE
     Dosage: 150 MG
     Route: 048
     Dates: start: 20180616
  19. ENOXAPARIN [Suspect]
     Active Substance: ENOXAPARIN
     Dosage: 500 IU
     Route: 058
     Dates: start: 20180608, end: 20180611
  20. VEMURAFENIB. [Suspect]
     Active Substance: VEMURAFENIB
     Indication: MALIGNANT MELANOMA
     Dosage: 1920 MG, QD
     Route: 048
     Dates: start: 20180312
  21. ASPIRIN. [Concomitant]
     Active Substance: ASPIRIN
     Indication: MYOCARDIAL INFARCTION
     Dosage: 100 MG, QD
     Route: 048
  22. CEFTRIAXONE. [Suspect]
     Active Substance: CEFTRIAXONE
     Indication: INFECTION
     Dosage: UNK
     Route: 065
     Dates: start: 20180321, end: 20180325
  23. ENOXAPARIN [Suspect]
     Active Substance: ENOXAPARIN
     Indication: ATRIAL FIBRILLATION
     Dosage: 10000 IU, QD
     Route: 058
     Dates: start: 20180608, end: 20180611
  24. COBIMETINIB. [Suspect]
     Active Substance: COBIMETINIB
     Dosage: 60 MG, QD
     Route: 048
     Dates: start: 20190403
  25. ASPIRIN. [Concomitant]
     Active Substance: ASPIRIN
     Indication: CEREBROVASCULAR ACCIDENT
  26. COBIMETINIB. [Suspect]
     Active Substance: COBIMETINIB
     Indication: MALIGNANT MELANOMA
     Dosage: 60 MG, QD
     Route: 048
     Dates: start: 20180312

REACTIONS (21)
  - Atrial fibrillation [Recovering/Resolving]
  - Upper gastrointestinal haemorrhage [Unknown]
  - Infection [Recovering/Resolving]
  - Stevens-Johnson syndrome [Recovered/Resolved]
  - Syncope [Recovered/Resolved]
  - Spinal fracture [Not Recovered/Not Resolved]
  - Pulmonary embolism [Unknown]
  - Decreased appetite [Not Recovered/Not Resolved]
  - Nausea [Recovered/Resolved]
  - Dyspnoea [Recovered/Resolved]
  - Deep vein thrombosis [Unknown]
  - Gastric ulcer [Recovered/Resolved]
  - Dysphagia [Not Recovered/Not Resolved]
  - Vomiting [Not Recovered/Not Resolved]
  - Erythema multiforme [Recovered/Resolved]
  - Hypokalaemia [Recovered/Resolved]
  - Fibrin D dimer increased [Recovered/Resolved]
  - Fibrin D dimer increased [Recovered/Resolved]
  - Anaemia [Recovered/Resolved]
  - Melaena [Recovered/Resolved]
  - Helicobacter infection [Recovered/Resolved]

NARRATIVE: CASE EVENT DATE: 20180320
